FAERS Safety Report 13681794 (Version 1)
Quarter: 2017Q2

REPORT INFORMATION
  Report Type: Spontaneous
  Country: US (occurrence: US)
  Receive Date: 20170622
  Receipt Date: 20170622
  Transmission Date: 20170830
  Serious: Yes (Life-Threatening, Hospitalization)
  Sender: FDA-Public Use
  Company Number: None

PATIENT
  Age: 64 Year
  Sex: Male
  Weight: 77.85 kg

DRUGS (7)
  1. WARFARIN [Suspect]
     Active Substance: WARFARIN
  2. ASPIRIN. [Suspect]
     Active Substance: ASPIRIN
  3. VITAMIN D3 [Suspect]
     Active Substance: CHOLECALCIFEROL
  4. ATORVASTATIN [Suspect]
     Active Substance: ATORVASTATIN
  5. OMEPRAZOLE. [Suspect]
     Active Substance: OMEPRAZOLE
  6. CENTRAL-VITE ^MEN^S OVER 50^ MULTI-VITAMIN [Concomitant]
  7. ELIQUIS [Suspect]
     Active Substance: APIXABAN
     Indication: PULMONARY EMBOLISM
     Dosage: ?          QUANTITY:1 TABLET(S);?
     Route: 048
     Dates: start: 20170519, end: 20170521

REACTIONS (2)
  - Pulmonary embolism [None]
  - Product quality issue [None]

NARRATIVE: CASE EVENT DATE: 20170521
